FAERS Safety Report 4944942-7 (Version None)
Quarter: 2006Q1

REPORT INFORMATION
  Report Type: 
  Country: None (occurrence: None)
  Receive Date: 20060123
  Receipt Date: 20041227
  Transmission Date: 20060701
  Serious: Yes (Other)
  Sender: FDA-Public Use
  Company Number: PHEH2004US13690

PATIENT
  Age: 41 Year
  Sex: Male

DRUGS (6)
  1. SANDOSTATIN LAR [Suspect]
     Indication: CARCINOID TUMOUR
     Dosage: 40 MG, Q 28 DAYS, INJECTION NOS; 40 MG, Q21 DAYS, INJECTION NOS
     Dates: start: 20030401, end: 20030801
  2. SANDOSTATIN LAR [Suspect]
     Indication: CARCINOID TUMOUR
     Dosage: 40 MG, Q 28 DAYS, INJECTION NOS; 40 MG, Q21 DAYS, INJECTION NOS
     Dates: start: 20040801
  3. INTERFERON(INTERFERON) [Suspect]
     Dosage: 2 MILLION UNITS, INJECTION NOS; 6 MILLION UNITS INJECTION NOS
     Dates: start: 20040801
  4. LANTUS [Concomitant]
  5. HUMALOG [Concomitant]
  6. METFORMIN HCL [Concomitant]

REACTIONS (1)
  - BLOOD GLUCOSE INCREASED [None]
